FAERS Safety Report 16678790 (Version 1)
Quarter: 2019Q3

REPORT INFORMATION
  Report Type: Spontaneous
  Country: NL (occurrence: ES)
  Receive Date: 20190807
  Receipt Date: 20190807
  Transmission Date: 20191004
  Serious: Yes (Hospitalization)
  Sender: FDA-Public Use
  Company Number: ES-FRESENIUS KABI-FK201908670

PATIENT
  Age: 94 Year
  Sex: Female

DRUGS (5)
  1. FUROSEMIDE. [Concomitant]
     Active Substance: FUROSEMIDE
     Indication: HYPERTENSION
     Route: 048
     Dates: start: 20190528, end: 20190603
  2. SULFAMETHOXAZOLE/TRIMETHOPRIM [Interacting]
     Active Substance: SULFAMETHOXAZOLE\TRIMETHOPRIM
     Indication: PNEUMONIA
     Route: 048
     Dates: start: 20190529, end: 20190531
  3. LEVOFLOXACIN (MANUFACTURER UNKNOWN) [Suspect]
     Active Substance: LEVOFLOXACIN
     Indication: PNEUMONIA
     Route: 042
     Dates: start: 20190523, end: 20190529
  4. NAPROXEN. [Interacting]
     Active Substance: NAPROXEN
     Indication: OSTEITIS
     Route: 048
     Dates: start: 20190525, end: 20190527
  5. ENALAPRIL MALEATE. [Interacting]
     Active Substance: ENALAPRIL MALEATE
     Indication: HYPERTENSION
     Route: 048
     Dates: start: 20190523, end: 20190527

REACTIONS (1)
  - Acute kidney injury [Recovered/Resolved]

NARRATIVE: CASE EVENT DATE: 20190531
